FAERS Safety Report 9058757 (Version 1)
Quarter: 2013Q1

REPORT INFORMATION
  Report Type: Spontaneous
  Country: BR (occurrence: BR)
  Receive Date: 20130204
  Receipt Date: 20130204
  Transmission Date: 20140127
  Serious: Yes (Other)
  Sender: FDA-Public Use
  Company Number: PHHY2013BR010303

PATIENT
  Sex: Male
  Weight: 99 kg

DRUGS (2)
  1. RITALIN LA [Suspect]
     Indication: ATTENTION DEFICIT/HYPERACTIVITY DISORDER
     Dosage: UNK UKN, UNK
     Dates: start: 20130118
  2. ANTIDEPRESSANTS [Concomitant]
     Dosage: UNK UKN, UNK

REACTIONS (2)
  - Depression [Recovering/Resolving]
  - Affective disorder [Recovering/Resolving]
